FAERS Safety Report 4997261-7 (Version None)
Quarter: 2006Q1

REPORT INFORMATION
  Report Type: 
  Country: None (occurrence: None)
  Receive Date: 20060315
  Receipt Date: 20060110
  Transmission Date: 20060701
  Serious: Yes (Other)
  Sender: FDA-Public Use
  Company Number: 430909

PATIENT
  Sex: Female

DRUGS (5)
  1. BONIVA [Suspect]
     Dates: start: 20060101
  2. VITAMIN NOS (MULTIVITAMIN NOS) [Concomitant]
  3. ASPIRIN [Concomitant]
  4. GLUCOSAMINE (GLUCOSAMINE) [Concomitant]
  5. HYDROCHLOROQUINE (HYRDOCHLOROQUINE) [Concomitant]

REACTIONS (3)
  - PAIN [None]
  - PYREXIA [None]
  - TREMOR [None]
